FAERS Safety Report 7726985-3 (Version None)
Quarter: 2011Q3

REPORT INFORMATION
  Report Type: 
  Country: None (occurrence: None)
  Receive Date: 20110902
  Receipt Date: 20110830
  Transmission Date: 20111222
  Serious: Yes (Hospitalization)
  Sender: FDA-Public Use
  Company Number: FR-PFIZER INC-2011201274

PATIENT
  Age: 81 Year
  Sex: Male

DRUGS (16)
  1. ASPIRIN [Concomitant]
  2. TENORMIN [Concomitant]
  3. DAFLON [Concomitant]
  4. POTASSIUM CHLORIDE [Concomitant]
  5. ATORVASTATIN CALCIUM [Concomitant]
  6. ALFUZOSIN HCL [Concomitant]
  7. INSULIN [Concomitant]
  8. CLINDAMYCIN [Suspect]
     Indication: OSTEITIS
     Dosage: UNK
     Route: 042
     Dates: start: 20110507, end: 20110512
  9. NEXIUM [Concomitant]
  10. ACETAMINOPHEN [Concomitant]
  11. PROZAC [Concomitant]
  12. CLINDAMYCIN HCL [Suspect]
     Indication: OSTEITIS
     Dosage: UNK
     Route: 048
     Dates: start: 20110512, end: 20110513
  13. TEGRETOL [Concomitant]
  14. PIPERACILLIN AND TAZOBACTAM [Suspect]
     Indication: OSTEITIS
     Dosage: 1 DF, 2X/DAY
     Route: 042
     Dates: start: 20110505, end: 20110513
  15. PERINDOPRIL ERBUMINE [Concomitant]
  16. PREVISCAN [Concomitant]

REACTIONS (2)
  - PURPURA [None]
  - RASH MACULO-PAPULAR [None]
